FAERS Safety Report 21025968 (Version 2)
Quarter: 2022Q3

REPORT INFORMATION
  Report Type: Spontaneous
  Country: US (occurrence: US)
  Receive Date: 20220630
  Receipt Date: 20220728
  Transmission Date: 20221027
  Serious: Yes (Hospitalization)
  Sender: FDA-Public Use
  Company Number: US-PFIZER INC-2021199538

PATIENT
  Age: 6 Year
  Sex: Male

DRUGS (1)
  1. SOMAVERT [Suspect]
     Active Substance: PEGVISOMANT
     Dosage: 10 MG
     Dates: start: 20210217

REACTIONS (4)
  - COVID-19 [Unknown]
  - Norovirus infection [Unknown]
  - Off label use [Unknown]
  - Product storage error [Unknown]
